FAERS Safety Report 24572625 (Version 3)
Quarter: 2024Q4

REPORT INFORMATION
  Report Type: Spontaneous
  Country: US (occurrence: US)
  Receive Date: 20241101
  Receipt Date: 20241204
  Transmission Date: 20250114
  Serious: Yes (Hospitalization)
  Sender: AMGEN
  Company Number: US-AMGEN-USASP2024214274

PATIENT
  Sex: Male

DRUGS (1)
  1. RAVICTI [Suspect]
     Active Substance: GLYCEROL PHENYLBUTYRATE
     Indication: Ornithine transcarbamoylase deficiency
     Dosage: 1 MILLILITER, Q8H, (PACKAGING SIZE: 1.1GM/ML)
     Route: 048
     Dates: start: 202410

REACTIONS (3)
  - Vomiting [Recovered/Resolved]
  - Unevaluable event [Unknown]
  - Weight abnormal [Unknown]
